FAERS Safety Report 4865070-5 (Version None)
Quarter: 2005Q4

REPORT INFORMATION
  Report Type: 
  Country: None (occurrence: None)
  Receive Date: 20051223
  Receipt Date: 20051208
  Transmission Date: 20060501
  Serious: Yes (Hospitalization)
  Sender: FDA-Public Use
  Company Number: GBWYE224112DEC05

PATIENT
  Sex: Female

DRUGS (2)
  1. ENBREL [Suspect]
     Indication: RHEUMATOID ARTHRITIS
     Dosage: 50 MG
     Dates: start: 20050801
  2. PNEUMOVAX 23 [Suspect]
     Dosage: UNKNOWN

REACTIONS (4)
  - ARTHRALGIA [None]
  - ARTHRITIS BACTERIAL [None]
  - MALAISE [None]
  - MOVEMENT DISORDER [None]
